FAERS Safety Report 5740219-0 (Version None)
Quarter: 2008Q2

REPORT INFORMATION
  Report Type: 
  Country: None (occurrence: None)
  Receive Date: 20080516
  Receipt Date: 20080508
  Transmission Date: 20081010
  Serious: Yes (Other)
  Sender: FDA-Public Use
  Company Number: JP-AVENTIS-200810933JP

PATIENT
  Age: 57 Year
  Sex: Male

DRUGS (7)
  1. LASIX [Suspect]
     Route: 048
     Dates: start: 20080209, end: 20080225
  2. LASIX [Suspect]
     Route: 048
     Dates: start: 20080226
  3. HALFDIGOXIN [Concomitant]
     Route: 048
     Dates: start: 20080209
  4. TANATRIL [Concomitant]
     Route: 048
     Dates: start: 20080209, end: 20080216
  5. ALDACTONE [Concomitant]
     Route: 048
     Dates: start: 20080209
  6. WARFARIN SODIUM [Concomitant]
     Dosage: DOSE: 2 TO 4 MG
     Route: 048
     Dates: start: 20080213, end: 20080225
  7. ARTIST [Concomitant]
     Route: 048
     Dates: start: 20080215, end: 20080218

REACTIONS (2)
  - HEPATIC FUNCTION ABNORMAL [None]
  - LIVER INJURY [None]
